FAERS Safety Report 12248667 (Version 1)
Quarter: 2016Q2

REPORT INFORMATION
  Report Type: Spontaneous
  Country: US (occurrence: US)
  Receive Date: 20160408
  Receipt Date: 20160408
  Transmission Date: 20160815
  Serious: No
  Sender: FDA-Public Use
  Company Number: US-PFIZER INC-2016077834

PATIENT
  Age: 41 Year
  Sex: Male
  Weight: 114 kg

DRUGS (16)
  1. INSPRA [Concomitant]
     Active Substance: EPLERENONE
     Dosage: 50 MG, DAILY
     Route: 048
  2. VITAMIN D3 [Concomitant]
     Active Substance: CHOLECALCIFEROL
     Dosage: 1000 IU, DAILY
     Route: 048
  3. APRESOLINE HYDROCHLORIDE [Concomitant]
     Active Substance: HYDRALAZINE HYDROCHLORIDE
     Dosage: 25 MG, 3X/DAY
     Route: 048
  4. BUMEX [Concomitant]
     Active Substance: BUMETANIDE
     Dosage: 1 MG, 3X/DAY
     Route: 048
  5. COREG [Concomitant]
     Active Substance: CARVEDILOL
     Dosage: 3.125 MG
  6. FRAGMIN [Suspect]
     Active Substance: DALTEPARIN SODIUM
     Indication: HYPERCOAGULATION
     Dosage: 0.5 ML, 2X/DAY(EVERY 12 HOURS)
     Route: 058
  7. ASPIRIN. [Concomitant]
     Active Substance: ASPIRIN
     Dosage: 81 MG, DAILY
     Route: 048
  8. COREG [Concomitant]
     Active Substance: CARVEDILOL
     Indication: CARDIAC FAILURE CHRONIC
     Dosage: 25 MG, 2X/DAY
     Route: 048
  9. MICRO-K [Concomitant]
     Active Substance: POTASSIUM CHLORIDE
     Dosage: UNK(10 MEQ CR CAPSULE; TAKE 2 TABLETS 5 DAYS PER WEEK, 1 TABLET ON SA AND SU)
  10. ISORDIL [Concomitant]
     Active Substance: ISOSORBIDE DINITRATE
     Dosage: 10 MG, 3X/DAY
     Route: 048
  11. ZYLOPRIM [Concomitant]
     Active Substance: ALLOPURINOL
     Dosage: 100 MG, DAILY
     Route: 048
  12. ZOCOR [Concomitant]
     Active Substance: SIMVASTATIN
     Dosage: 40 MG, 1X/DAY(1 TABLET BY MOUTH NIGHTLY AT BED TIME)
     Route: 048
  13. PRINIVIL [Concomitant]
     Active Substance: LISINOPRIL
     Dosage: 5 MG, 3X/DAY
     Route: 048
  14. PRILOSEC [Concomitant]
     Active Substance: OMEPRAZOLE MAGNESIUM
     Dosage: 20 MG, DAILY
     Route: 048
  15. ZESTRIL [Concomitant]
     Active Substance: LISINOPRIL
     Dosage: 5 MG, 3X/DAY
     Route: 048
  16. PERCOCET [Concomitant]
     Active Substance: ACETAMINOPHEN\OXYCODONE HYDROCHLORIDE
     Indication: PAIN
     Dosage: UNK(OXYCODONE HYDROCHLORIDE:5MG, PARACETAMOL:325 MG) EVERY 6 HOURS
     Route: 048

REACTIONS (4)
  - Weight increased [Unknown]
  - Myalgia [Unknown]
  - Fatigue [Unknown]
  - Palpitations [Unknown]
